FAERS Safety Report 9379259 (Version 3)
Quarter: 2013Q4

REPORT INFORMATION
  Report Type: Spontaneous
  Country: US (occurrence: US)
  Receive Date: 20130702
  Receipt Date: 20131021
  Transmission Date: 20140711
  Serious: Yes (Other)
  Sender: FDA-Public Use
  Company Number: US-JNJFOC-20130615820

PATIENT
  Sex: Female

DRUGS (11)
  1. STELARA [Suspect]
     Indication: PSORIASIS
     Route: 058
  2. MOBIC [Concomitant]
     Indication: OSTEOARTHRITIS
     Route: 048
  3. MICARDIS HCT [Concomitant]
     Indication: HYPERTENSION
     Route: 065
  4. WOMEN^S ELITE VITAMINS [Concomitant]
     Indication: PRODUCT USED FOR UNKNOWN INDICATION
     Route: 065
  5. MOTRIN [Concomitant]
     Route: 048
  6. TOPROL-XL [Concomitant]
     Route: 048
  7. HEXAVITAMIN [Concomitant]
     Route: 048
  8. NICODERM CQ [Concomitant]
     Dosage: PLACE THE PATCH ONTO THE SKIN EVERY 24 HOURS
     Route: 048
  9. PERCOCET [Concomitant]
     Indication: PAIN
     Dosage: TO TAKE 1-2 TABLET BY MOUTH EVERY 6 HOURS AS NEEDED FOR PAIN
     Route: 048
  10. WELLBUTRIN SR [Concomitant]
     Route: 048
  11. ADVIL [Concomitant]
     Route: 048

REACTIONS (1)
  - Vaginal dysplasia [Unknown]
